FAERS Safety Report 26215397 (Version 1)
Quarter: 2025Q4

REPORT INFORMATION
  Report Type: Spontaneous
  Country: EG (occurrence: EG)
  Receive Date: 20251231
  Receipt Date: 20251231
  Transmission Date: 20260117
  Serious: Yes (Other)
  Sender: HIKMA
  Company Number: EG-HIKMA PHARMACEUTICALS-EG-H14001-25-13798

PATIENT
  Age: 40 Year
  Sex: Female
  Weight: 115 kg

DRUGS (2)
  1. CARBOPLATIN [Suspect]
     Active Substance: CARBOPLATIN
     Indication: Ovarian cancer
     Dosage: 434.5 MG WAS ADMINISTERED OVER 30 MINUTES AS DOSE 3, REPEATED EVERY SEVEN DAYS BY THE INTRAVENOUS ROUTE OF ADMINISTRATION
     Dates: start: 20251112
  2. PACLITAXEL [Suspect]
     Active Substance: PACLITAXEL
     Indication: Ovarian cancer
     Dosage: 150 MG WAS ADMINISTERED OVER ONE HOUR AS DOSE 7 (WEEK 7), REPEATED EVERY SEVEN DAYS
     Dates: start: 20251112

REACTIONS (4)
  - Bone pain [Recovered/Resolved]
  - Dyspnoea [Recovered/Resolved]
  - Abdominal pain [Recovered/Resolved]
  - Neuropathy peripheral [Recovered/Resolved]

NARRATIVE: CASE EVENT DATE: 20251112
